FAERS Safety Report 4331051-3 (Version None)
Quarter: 2004Q1

REPORT INFORMATION
  Report Type: 
  Country: None (occurrence: None)
  Receive Date: 20040331
  Receipt Date: 20040325
  Transmission Date: 20041129
  Serious: Yes (Hospitalization)
  Sender: FDA-Public Use
  Company Number: 2004UW05858

PATIENT
  Age: 57 Year
  Sex: Female

DRUGS (7)
  1. PRILOSEC [Suspect]
     Indication: HYPERCHLORHYDRIA
     Dates: start: 20040101
  2. PREVACID [Suspect]
     Indication: GASTROOESOPHAGEAL REFLUX DISEASE
     Dosage: 15 MG BID PO
     Route: 048
     Dates: start: 20020930, end: 20021001
  3. PREVACID [Suspect]
     Indication: HYPERCHLORHYDRIA
     Dosage: 15 MG BID PO
     Route: 048
     Dates: start: 20020930, end: 20021001
  4. PREVACID [Suspect]
     Indication: GASTROOESOPHAGEAL REFLUX DISEASE
  5. PREVACID [Suspect]
     Indication: HYPERCHLORHYDRIA
  6. SYNTHROID [Concomitant]
  7. XANAX [Concomitant]

REACTIONS (3)
  - FLATULENCE [None]
  - GASTROINTESTINAL PAIN [None]
  - INCISION SITE ABSCESS [None]
